FAERS Safety Report 7110998-9 (Version None)
Quarter: 2010Q4

REPORT INFORMATION
  Report Type: 
  Country: None (occurrence: None)
  Receive Date: 20101118
  Receipt Date: 20101109
  Transmission Date: 20110411
  Serious: Yes (Other)
  Sender: FDA-Public Use
  Company Number: CA-JNJFOC-20101104271

PATIENT
  Sex: Female
  Weight: 61 kg

DRUGS (10)
  1. REMICADE [Suspect]
     Indication: CROHN'S DISEASE
     Route: 042
  2. REMICADE [Suspect]
     Route: 042
  3. METHOTREXATE [Concomitant]
     Route: 058
  4. QUESTRAN [Concomitant]
  5. DITROPAN [Concomitant]
  6. CALCIUM [Concomitant]
  7. VITAMIN D [Concomitant]
  8. FOLIC ACID [Concomitant]
  9. IRON [Concomitant]
  10. TYLENOL WITH CODEINE NO 1 [Concomitant]

REACTIONS (1)
  - VAGINAL POLYP [None]
